FAERS Safety Report 26207701 (Version 1)
Quarter: 2025Q4

REPORT INFORMATION
  Report Type: Spontaneous
  Country: GB (occurrence: GB)
  Receive Date: 20251229
  Receipt Date: 20251229
  Transmission Date: 20260118
  Serious: Yes (Other)
  Sender: AUROBINDO
  Company Number: GB-MHRA-TPP29518617C9867916YC1765819259592

PATIENT
  Age: 63 Day
  Sex: Male
  Weight: 68 kg

DRUGS (13)
  1. APIXABAN [Suspect]
     Active Substance: APIXABAN
     Indication: Product used for unknown indication
     Dosage: 5 MILLIGRAM, TWO TIMES A DAY (TAKE ONE TABLET TWICE DAILY TO THIN BLOOD)
     Route: 061
     Dates: start: 20251205
  2. DOXYCYCLINE [Concomitant]
     Active Substance: DOXYCYCLINE
     Indication: Product used for unknown indication
     Dosage: TAKE TWO NOW, THEN TAKE ONE DAILY FOR A FURTHER...
     Route: 065
     Dates: start: 20251007, end: 20251012
  3. HYDROXOCOBALAMIN [Concomitant]
     Active Substance: HYDROXOCOBALAMIN
     Indication: Product used for unknown indication
     Dosage: USE AS DIRECTED
     Route: 065
  4. ATORVASTATIN [Concomitant]
     Active Substance: ATORVASTATIN
     Indication: Product used for unknown indication
     Dosage: 1 DOSAGE FORM, DAILY
     Route: 065
  5. BISOPROLOL [Concomitant]
     Active Substance: BISOPROLOL
     Indication: Product used for unknown indication
     Dosage: 1 DOSAGE FORM, DAILY
     Route: 065
  6. CAVERJECT [Concomitant]
     Active Substance: ALPROSTADIL
     Indication: Product used for unknown indication
     Dosage: USE AS DIRECTED
     Route: 065
  7. EDOXABAN [Concomitant]
     Active Substance: EDOXABAN
     Indication: Product used for unknown indication
     Dosage: 1 DOSAGE FORM, DAILY
     Route: 065
     Dates: start: 20241210, end: 20251205
  8. GLUCOGEL [Concomitant]
     Indication: Ill-defined disorder
     Dosage: USE AS DIRECTED
     Route: 065
  9. LANTUS [Concomitant]
     Active Substance: INSULIN GLARGINE
     Indication: Product used for unknown indication
     Dosage: AS DIRECTED
     Route: 065
  10. NOVORAPID [Concomitant]
     Active Substance: INSULIN ASPART
     Indication: Product used for unknown indication
     Dosage: UNK UNK, PRN
     Route: 065
  11. PANTOPRAZOLE [Concomitant]
     Active Substance: PANTOPRAZOLE
     Indication: Product used for unknown indication
     Dosage: 1 DOSAGE FORM, DAILY
     Route: 065
  12. RAMIPRIL [Concomitant]
     Active Substance: RAMIPRIL
     Indication: Ill-defined disorder
     Dosage: 1 DOSAGE FORM, DAILY (FOR BLOOD PRESSURE)
     Route: 065
  13. RIVAROXABAN [Concomitant]
     Active Substance: RIVAROXABAN
     Indication: Product used for unknown indication
     Dosage: 1 DOSAGE FORM, ONCE A DAY (WITH FOOD)
     Route: 065
     Dates: start: 20251215

REACTIONS (1)
  - Blood glucose increased [Unknown]
